FAERS Safety Report 9278535 (Version 1)
Quarter: 2013Q2

REPORT INFORMATION
  Report Type: Spontaneous
  Country: AU (occurrence: AU)
  Receive Date: 20130508
  Receipt Date: 20130508
  Transmission Date: 20140414
  Serious: Yes (Other)
  Sender: FDA-Public Use
  Company Number: AU-BAYER-2013-055477

PATIENT
  Sex: Female

DRUGS (1)
  1. YAZ [Suspect]
     Dosage: UNK
     Dates: start: 201301

REACTIONS (7)
  - Pain in extremity [Not Recovered/Not Resolved]
  - Joint swelling [Unknown]
  - Dyspnoea [Unknown]
  - Fatigue [Unknown]
  - Thirst [Unknown]
  - Vision blurred [Unknown]
  - Headache [None]
